FAERS Safety Report 14211723 (Version 4)
Quarter: 2018Q2

REPORT INFORMATION
  Report Type: Report from Study
  Country: US (occurrence: US)
  Receive Date: 20171121
  Receipt Date: 20180628
  Transmission Date: 20180711
  Serious: Yes (Hospitalization)
  Sender: FDA-Public Use
  Company Number: US-ACTELION-A-NJ2017-159187

PATIENT
  Age: 70 Year
  Sex: Female

DRUGS (1)
  1. OPSUMIT [Suspect]
     Active Substance: MACITENTAN
     Indication: PULMONARY ARTERIAL HYPERTENSION
     Dosage: 10 MG, QD
     Route: 048
     Dates: start: 20140711

REACTIONS (8)
  - Hospitalisation [Unknown]
  - Neuropathy peripheral [Unknown]
  - Respiratory tract infection [Not Recovered/Not Resolved]
  - Pneumonia [Unknown]
  - Gout [Not Recovered/Not Resolved]
  - Dyspnoea [Unknown]
  - Pain in extremity [Unknown]
  - Asthma [Unknown]

NARRATIVE: CASE EVENT DATE: 201709
